FAERS Safety Report 22275444 (Version 3)
Quarter: 2023Q2

REPORT INFORMATION
  Report Type: Spontaneous
  Country: US (occurrence: US)
  Receive Date: 20230502
  Receipt Date: 20230610
  Transmission Date: 20230722
  Serious: No
  Sender: FDA-Public Use
  Company Number: US-BRISTOL-MYERS SQUIBB COMPANY-2023-062403

PATIENT
  Age: 76 Year
  Sex: Female
  Weight: 45.35 kg

DRUGS (1)
  1. POMALYST [Suspect]
     Active Substance: POMALIDOMIDE
     Indication: Plasma cell myeloma
     Route: 048

REACTIONS (6)
  - Fatigue [Unknown]
  - Cough [Unknown]
  - Rash [Unknown]
  - Dyspnoea [Unknown]
  - Malaise [Unknown]
  - Genital rash [Unknown]
